FAERS Safety Report 11170638 (Version 1)
Quarter: 2015Q2

REPORT INFORMATION
  Report Type: Spontaneous
  Country: AR (occurrence: AR)
  Receive Date: 20150608
  Receipt Date: 20150608
  Transmission Date: 20150821
  Serious: Yes (Hospitalization)
  Sender: FDA-Public Use
  Company Number: AR-SA-2015SA077236

PATIENT
  Age: 11 Year
  Sex: Male

DRUGS (3)
  1. CEREZYME [Suspect]
     Active Substance: IMIGLUCERASE
     Indication: GAUCHER^S DISEASE
     Dosage: DOSE:60 UNIT(S)/KILOGRAM BODYWEIGHT
     Route: 042
     Dates: start: 200603, end: 2011
  2. CEREZYME [Suspect]
     Active Substance: IMIGLUCERASE
     Indication: GAUCHER^S DISEASE
     Dosage: DOSE:120 UNIT(S)/KILOGRAM BODYWEIGHT
     Route: 042
     Dates: start: 2011
  3. ZAVESCA [Concomitant]
     Active Substance: MIGLUSTAT
     Indication: GAUCHER^S DISEASE
     Dates: start: 2011

REACTIONS (3)
  - Pyrexia [Unknown]
  - Pneumonia [Not Recovered/Not Resolved]
  - Condition aggravated [Unknown]

NARRATIVE: CASE EVENT DATE: 2011
